FAERS Safety Report 8410150-0 (Version None)
Quarter: 2012Q2

REPORT INFORMATION
  Report Type: 
  Country: None (occurrence: None)
  Receive Date: 20120605
  Receipt Date: 20120529
  Transmission Date: 20120825
  Serious: Yes (Hospitalization, Other)
  Sender: FDA-Public Use
  Company Number: PHHY2012IN046990

PATIENT
  Age: 73 Year
  Sex: Female

DRUGS (1)
  1. ZOLEDRONOC ACID [Suspect]
     Dosage: 5 MG/100 ML
     Route: 042
     Dates: start: 20111108

REACTIONS (6)
  - ATYPICAL FEMUR FRACTURE [None]
  - PNEUMONITIS [None]
  - ARTHRALGIA [None]
  - PAIN IN EXTREMITY [None]
  - OSTEOPOROTIC FRACTURE [None]
  - LASEGUE'S TEST POSITIVE [None]
